FAERS Safety Report 6360777-5 (Version None)
Quarter: 2009Q3

REPORT INFORMATION
  Report Type: 
  Country: None (occurrence: None)
  Receive Date: 20090918
  Receipt Date: 20090911
  Transmission Date: 20100115
  Serious: Yes (Other)
  Sender: FDA-Public Use
  Company Number: US-JNJFOC-20090707527

PATIENT
  Sex: Male
  Weight: 83.01 kg

DRUGS (16)
  1. DURAGESIC-100 [Suspect]
     Route: 062
  2. DURAGESIC-100 [Suspect]
     Route: 062
  3. DURAGESIC-100 [Suspect]
     Route: 062
  4. DURAGESIC-100 [Suspect]
     Route: 062
  5. DURAGESIC-100 [Suspect]
     Route: 062
  6. DURAGESIC-100 [Suspect]
     Indication: BACK PAIN
     Route: 062
  7. PAIN MEDICATION UNSPECIFIED [Suspect]
     Indication: BACK PAIN
     Route: 048
  8. FENTANYL TRANSDERMAL SYSTEM [Suspect]
     Route: 062
  9. FENTANYL TRANSDERMAL SYSTEM [Suspect]
     Route: 062
  10. FENTANYL TRANSDERMAL SYSTEM [Suspect]
     Route: 062
  11. FENTANYL TRANSDERMAL SYSTEM [Suspect]
     Indication: BACK PAIN
     Route: 062
  12. ROBAXIN [Concomitant]
     Route: 065
  13. VALIUM [Concomitant]
     Route: 065
  14. VALIUM [Concomitant]
     Route: 065
  15. LAMICTAL [Concomitant]
     Route: 065
  16. EFFEXOR [Concomitant]
     Route: 065

REACTIONS (15)
  - ABDOMINAL DISCOMFORT [None]
  - ANXIETY [None]
  - APPLICATION SITE RASH [None]
  - BACK PAIN [None]
  - BURNOUT SYNDROME [None]
  - DRUG ADMINISTERED AT INAPPROPRIATE SITE [None]
  - DRUG INEFFECTIVE [None]
  - DRUG LEVEL INCREASED [None]
  - DRUG SCREEN NEGATIVE [None]
  - FATIGUE [None]
  - INAPPROPRIATE SCHEDULE OF DRUG ADMINISTRATION [None]
  - MULTIPLE ALLERGIES [None]
  - NASOPHARYNGITIS [None]
  - PAIN IN EXTREMITY [None]
  - PANIC ATTACK [None]
